FAERS Safety Report 6804709-1 (Version None)
Quarter: 2010Q2

REPORT INFORMATION
  Report Type: 
  Country: None (occurrence: None)
  Receive Date: 20100628
  Receipt Date: 20070222
  Transmission Date: 20101027
  Serious: No
  Sender: FDA-Public Use
  Company Number: US-PFIZER INC-2007041042

PATIENT
  Sex: Female

DRUGS (10)
  1. GEODON [Suspect]
     Route: 048
     Dates: start: 20070501
  2. WELLBUTRIN [Concomitant]
  3. SEROQUEL [Concomitant]
  4. LAMICTAL [Concomitant]
  5. NORVASC [Concomitant]
  6. TOPROL-XL [Concomitant]
  7. COZAAR [Concomitant]
  8. SYNTHROID [Concomitant]
  9. PROTONIX [Concomitant]
  10. MAGNESIUM [Concomitant]

REACTIONS (1)
  - MUSCLE SPASMS [None]
